FAERS Safety Report 14315905 (Version 4)
Quarter: 2018Q2

REPORT INFORMATION
  Report Type: Report from Study
  Country: None (occurrence: US)
  Receive Date: 20171221
  Receipt Date: 20180418
  Transmission Date: 20180711
  Serious: Yes (Other)
  Sender: FDA-Public Use
  Company Number: US-ABBVIE-17K-163-2139116-00

PATIENT
  Age: 42 Year
  Sex: Female

DRUGS (3)
  1. HUMIRA [Suspect]
     Active Substance: ADALIMUMAB
     Dosage: DAY 29
     Route: 058
     Dates: start: 20171109
  2. HUMIRA [Suspect]
     Active Substance: ADALIMUMAB
     Indication: CROHN^S DISEASE
     Dosage: DAY 1
     Route: 058
     Dates: start: 20171012, end: 20171012
  3. HUMIRA [Suspect]
     Active Substance: ADALIMUMAB
     Dosage: DAY 15
     Route: 058
     Dates: start: 20171026, end: 20171026

REACTIONS (19)
  - Post procedural haemorrhage [Unknown]
  - Injection site urticaria [Unknown]
  - Fibromyalgia [Unknown]
  - Injection site bruising [Recovered/Resolved]
  - Constipation [Unknown]
  - Wrong technique in product usage process [Recovering/Resolving]
  - Depressed mood [Unknown]
  - Insomnia [Recovering/Resolving]
  - Weight decreased [Unknown]
  - Diarrhoea [Recovered/Resolved]
  - Rectal haemorrhage [Unknown]
  - Injection site urticaria [Recovered/Resolved]
  - Injection site rash [Unknown]
  - Abdominal pain [Recovering/Resolving]
  - Injection site pain [Recovered/Resolved]
  - Anxiety [Unknown]
  - Increased tendency to bruise [Unknown]
  - Injection site bruising [Unknown]
  - Injection site swelling [Recovered/Resolved]

NARRATIVE: CASE EVENT DATE: 2017
